FAERS Safety Report 16757859 (Version 2)
Quarter: 2019Q3

REPORT INFORMATION
  Report Type: Report from Study
  Country: CA (occurrence: CA)
  Receive Date: 20190830
  Receipt Date: 20190911
  Transmission Date: 20191005
  Serious: Yes (Hospitalization, Other)
  Sender: FDA-Public Use
  Company Number: CA-ROCHE-1553564

PATIENT
  Age: 48 Year
  Sex: Female

DRUGS (14)
  1. SULFATRIM [Concomitant]
     Active Substance: SULFAMETHOXAZOLE\TRIMETHOPRIM
     Route: 065
  2. PANTOPRAZOLE [Concomitant]
     Active Substance: PANTOPRAZOLE
  3. ACETAMINOPHEN. [Concomitant]
     Active Substance: ACETAMINOPHEN
     Indication: PREMEDICATION
     Route: 048
     Dates: start: 20141008
  4. PREDNISONE. [Concomitant]
     Active Substance: PREDNISONE
  5. OXYGEN. [Concomitant]
     Active Substance: OXYGEN
     Route: 065
  6. METHYLPREDNISOLONE. [Concomitant]
     Active Substance: METHYLPREDNISOLONE
     Indication: PREMEDICATION
     Route: 042
     Dates: start: 20141008
  7. CELLCEPT [Concomitant]
     Active Substance: MYCOPHENOLATE MOFETIL\MYCOPHENOLATE MOFETIL HYDROCHLORIDE
  8. CALTRATE [CALCIUM CARBONATE;COLECALCIFEROL] [Concomitant]
  9. FOSAVANCE [Concomitant]
     Active Substance: ALENDRONATE SODIUM\CHOLECALCIFEROL
  10. RITUXAN [Suspect]
     Active Substance: RITUXIMAB
     Indication: SCLERODERMA
     Dosage: LAST DOSE OF RITUXIMAB ON: 23/OCT/2014
     Route: 042
     Dates: start: 20141008
  11. NIFEDIPINE. [Concomitant]
     Active Substance: NIFEDIPINE
     Route: 065
     Dates: start: 20150303
  12. PERINDOPRIL [Concomitant]
     Active Substance: PERINDOPRIL
     Route: 065
     Dates: start: 201502
  13. DIPHENHYDRAMINE. [Concomitant]
     Active Substance: DIPHENHYDRAMINE
     Indication: PREMEDICATION
     Route: 048
     Dates: start: 20141008
  14. RITUXAN [Suspect]
     Active Substance: RITUXIMAB
     Indication: VASCULITIS

REACTIONS (15)
  - Off label use [Unknown]
  - Skin ulcer [Recovering/Resolving]
  - Drug ineffective [Unknown]
  - Heart rate increased [Unknown]
  - Anxiety [Not Recovered/Not Resolved]
  - Respiratory rate increased [Unknown]
  - Blood pressure diastolic abnormal [Unknown]
  - Arthritis infective [Unknown]
  - Blood pressure increased [Unknown]
  - Rheumatoid arthritis [Unknown]
  - Lung infection [Recovered/Resolved]
  - Oxygen saturation decreased [Unknown]
  - Blood pressure fluctuation [Unknown]
  - Intentional product use issue [Unknown]
  - Blood pressure increased [Unknown]

NARRATIVE: CASE EVENT DATE: 20150315
